FAERS Safety Report 20199604 (Version 1)
Quarter: 2021Q4

REPORT INFORMATION
  Report Type: Spontaneous
  Country: GB (occurrence: GB)
  Receive Date: 20211217
  Receipt Date: 20211217
  Transmission Date: 20220303
  Serious: Yes (Disabling, Other)
  Sender: FDA-Public Use
  Company Number: None

PATIENT
  Age: 50 Year
  Sex: Male
  Weight: 80 kg

DRUGS (3)
  1. CIPROFLOXACIN [Suspect]
     Active Substance: CIPROFLOXACIN
     Indication: Prostatitis
     Dosage: 500 MILLIGRAM
     Route: 048
     Dates: start: 20210714, end: 20210720
  2. ENALAPRIL MALEATE AND FOLIC ACID [Concomitant]
     Indication: Ill-defined disorder
     Dosage: UNK
  3. TAMSULOSIN HYDROCHLORIDE [Concomitant]
     Active Substance: TAMSULOSIN HYDROCHLORIDE
     Indication: Ill-defined disorder
     Dosage: UNK

REACTIONS (2)
  - Gait inability [Unknown]
  - Tendonitis [Recovered/Resolved with Sequelae]

NARRATIVE: CASE EVENT DATE: 20210717
